FAERS Safety Report 17010476 (Version 1)
Quarter: 2019Q4

REPORT INFORMATION
  Report Type: Spontaneous
  Country: FR (occurrence: FR)
  Receive Date: 20191108
  Receipt Date: 20191108
  Transmission Date: 20200122
  Serious: Yes (Other)
  Sender: FDA-Public Use
  Company Number: FR-US-PROVELL PHARMACEUTICALS LLC-9026012

PATIENT
  Age: 62 Year
  Sex: Female
  Weight: 63 kg

DRUGS (1)
  1. LEVOTHYROX 125 NF [Suspect]
     Active Substance: LEVOTHYROXINE SODIUM
     Indication: POST PROCEDURAL HYPOTHYROIDISM
     Route: 048
     Dates: start: 201705

REACTIONS (33)
  - Limb discomfort [Not Recovered/Not Resolved]
  - Morose [Unknown]
  - Body temperature increased [Unknown]
  - Fatigue [Not Recovered/Not Resolved]
  - Disturbance in attention [Not Recovered/Not Resolved]
  - Decreased activity [Unknown]
  - Malaise [Unknown]
  - Migraine [Not Recovered/Not Resolved]
  - Insomnia [Unknown]
  - Emotional disorder [Not Recovered/Not Resolved]
  - Depressed mood [Unknown]
  - Hyperhidrosis [Not Recovered/Not Resolved]
  - Angle closure glaucoma [Unknown]
  - Agitation [Unknown]
  - Impaired work ability [Unknown]
  - Feeling abnormal [Unknown]
  - C-reactive protein increased [Unknown]
  - Hypoalbuminaemia [Unknown]
  - Loss of libido [Unknown]
  - Self esteem decreased [Unknown]
  - Somnolence [Unknown]
  - Muscle spasms [Unknown]
  - Headache [Unknown]
  - Hot flush [Unknown]
  - Pain in extremity [Not Recovered/Not Resolved]
  - General physical health deterioration [Not Recovered/Not Resolved]
  - Diarrhoea [Not Recovered/Not Resolved]
  - Sleep disorder [Unknown]
  - Angioedema [Not Recovered/Not Resolved]
  - Social avoidant behaviour [Unknown]
  - Decreased interest [Unknown]
  - Tearfulness [Unknown]
  - Crying [Not Recovered/Not Resolved]

NARRATIVE: CASE EVENT DATE: 201705
